FAERS Safety Report 6301426-1 (Version None)
Quarter: 2009Q3

REPORT INFORMATION
  Report Type: 
  Country: None (occurrence: None)
  Receive Date: 20090806
  Receipt Date: 20090806
  Transmission Date: 20100115
  Serious: No
  Sender: FDA-Public Use
  Company Number: None

PATIENT
  Age: 17 Year
  Sex: Female
  Weight: 58.9676 kg

DRUGS (1)
  1. COPPERTONE SPORT SUNSCREEN -50SPF- [Suspect]
     Dosage: EPIDURAL
     Route: 008

REACTIONS (4)
  - DRUG INEFFECTIVE [None]
  - PRODUCT LABEL ISSUE [None]
  - PRODUCT QUALITY ISSUE [None]
  - SUNBURN [None]
